FAERS Safety Report 18392573 (Version 4)
Quarter: 2021Q2

REPORT INFORMATION
  Report Type: Report from Study
  Country: JP (occurrence: JP)
  Receive Date: 20201016
  Receipt Date: 20210616
  Transmission Date: 20210717
  Serious: Yes (Hospitalization, Other)
  Sender: FDA-Public Use
  Company Number: JP-ALNYLAM PHARMACEUTICALS, INC.-ALN-2020-000293

PATIENT

DRUGS (13)
  1. ONPATTRO [Suspect]
     Active Substance: PATISIRAN SODIUM
     Indication: HEREDITARY NEUROPATHIC AMYLOIDOSIS
     Dosage: 19.5 MILLIGRAM
     Route: 041
     Dates: start: 20191003, end: 20200127
  2. LYRICA [Concomitant]
     Active Substance: PREGABALIN
     Indication: HEREDITARY NEUROPATHIC AMYLOIDOSIS
     Dosage: 1 DOSAGE FORM, QD
  3. GASTERIN [Concomitant]
     Indication: PROPHYLAXIS
     Dosage: 20 MILLIGRAM, SINGLE
     Route: 042
     Dates: start: 20191003, end: 20191003
  4. CALONAL [Concomitant]
     Active Substance: ACETAMINOPHEN
     Indication: PROPHYLAXIS
     Dosage: 500 MILLIGRAM
     Route: 048
     Dates: start: 20200127, end: 20200127
  5. POLARAMINE [Concomitant]
     Active Substance: DEXCHLORPHENIRAMINE MALEATE
     Indication: PROPHYLAXIS
     Dosage: 5 MILLIGRAM, SINGLE
     Route: 065
     Dates: start: 20191003, end: 20191003
  6. NEORESTAR [Concomitant]
     Active Substance: CHLORPHENIRAMINE MALEATE
     Indication: PROPHYLAXIS
     Dosage: 10 MILLIGRAM
     Route: 042
     Dates: start: 20200127, end: 20200127
  7. LOXOPROFEN NA [Concomitant]
     Active Substance: LOXOPROFEN SODIUM
     Indication: HEREDITARY NEUROPATHIC AMYLOIDOSIS
     Dosage: 1 PASTE, QD
     Route: 065
  8. ACETAMINOPHEN. [Concomitant]
     Active Substance: ACETAMINOPHEN
     Indication: PROPHYLAXIS
     Dosage: 500 MILLIGRAM, SINGLE
     Route: 065
     Dates: start: 20191003, end: 20191003
  9. DEXART [Suspect]
     Active Substance: DEXAMETHASONE SODIUM PHOSPHATE
     Indication: PROPHYLAXIS
     Dosage: 3.3 MILLIGRAM
     Route: 041
     Dates: start: 20200127, end: 20200127
  10. DEXART [Concomitant]
     Active Substance: DEXAMETHASONE SODIUM PHOSPHATE
     Indication: PROPHYLAXIS
     Dosage: 10 MILLIGRAM, SINGLE
     Route: 065
     Dates: start: 20191003, end: 20191003
  11. SHAKUYAKUKANZOTO [Concomitant]
     Active Substance: HERBALS
     Indication: HEREDITARY NEUROPATHIC AMYLOIDOSIS
     Dosage: 1 YURT, QD
     Route: 065
  12. FAMOTIDINE. [Concomitant]
     Active Substance: FAMOTIDINE
     Indication: PROPHYLAXIS
     Dosage: 20 MILLIGRAM
     Route: 042
     Dates: start: 20200127, end: 20200127
  13. PANVITAN [Concomitant]
     Active Substance: VITAMINS
     Indication: PROPHYLAXIS
     Dosage: 1 GRAM, QD
     Route: 048
     Dates: start: 20191003

REACTIONS (3)
  - Cardiac failure [Recovered/Resolved]
  - Infusion related reaction [Recovered/Resolved]
  - Palpitations [Unknown]

NARRATIVE: CASE EVENT DATE: 2020
